FAERS Safety Report 25873057 (Version 4)
Quarter: 2025Q4

REPORT INFORMATION
  Report Type: Report from Study
  Country: US (occurrence: US)
  Receive Date: 20251002
  Receipt Date: 20251216
  Transmission Date: 20260118
  Serious: Yes (Other)
  Sender: DR REDDYS
  Company Number: US-DRL-USA-USA/2025/09/014875

PATIENT
  Age: 37 Year

DRUGS (4)
  1. ACCUTANE [Suspect]
     Active Substance: ISOTRETINOIN
     Indication: Product used for unknown indication
     Dosage: QD
     Route: 065
     Dates: start: 20250224, end: 20250921
  2. ACCUTANE [Suspect]
     Active Substance: ISOTRETINOIN
     Route: 065
     Dates: start: 20250310, end: 20250921
  3. ACCUTANE [Suspect]
     Active Substance: ISOTRETINOIN
     Route: 065
     Dates: start: 20250224, end: 20250923
  4. ACCUTANE [Suspect]
     Active Substance: ISOTRETINOIN
     Route: 065

REACTIONS (3)
  - Exposure during pregnancy [Unknown]
  - Abortion induced [Unknown]
  - Vaginal haemorrhage [Unknown]

NARRATIVE: CASE EVENT DATE: 20250921
